FAERS Safety Report 11174325 (Version 2)
Quarter: 2015Q2

REPORT INFORMATION
  Report Type: Report from Study
  Country: US (occurrence: US)
  Receive Date: 20150609
  Receipt Date: 20150618
  Transmission Date: 20150821
  Serious: Yes (Hospitalization)
  Sender: FDA-Public Use
  Company Number: US-BIOGENIDEC-2015BI073020

PATIENT
  Age: 47 Year
  Sex: Male

DRUGS (1)
  1. PLEGRIDY [Suspect]
     Active Substance: PEGINTERFERON BETA-1A
     Indication: MULTIPLE SCLEROSIS
     Dates: start: 20150518

REACTIONS (4)
  - Loss of control of legs [Recovered/Resolved]
  - Sensory loss [Recovered/Resolved]
  - Fatigue [Unknown]
  - Incontinence [Recovered/Resolved]

NARRATIVE: CASE EVENT DATE: 20150518
